FAERS Safety Report 5304571-2 (Version None)
Quarter: 2007Q2

REPORT INFORMATION
  Report Type: 
  Country: None (occurrence: None)
  Receive Date: 20070423
  Receipt Date: 20070419
  Transmission Date: 20071010
  Serious: Yes (Hospitalization)
  Sender: FDA-Public Use
  Company Number: US-GLAXOSMITHKLINE-A0640993A

PATIENT
  Age: 44 Year
  Sex: Female

DRUGS (5)
  1. LAMICTAL [Suspect]
     Indication: BIPOLAR DISORDER
     Dosage: 150MG PER DAY
     Route: 048
     Dates: start: 20070101, end: 20070301
  2. REMIFEMIN [Concomitant]
  3. KLONOPIN [Concomitant]
  4. PROGESTERONE CREAM [Concomitant]
  5. ESTROVEN [Concomitant]

REACTIONS (6)
  - ANXIETY [None]
  - BLOOD PRESSURE INCREASED [None]
  - HEART RATE INCREASED [None]
  - METRORRHAGIA [None]
  - RASH [None]
  - VAGINAL HAEMORRHAGE [None]
